FAERS Safety Report 11113834 (Version 1)
Quarter: 2015Q2

REPORT INFORMATION
  Report Type: Spontaneous
  Country: TR (occurrence: TR)
  Receive Date: 20150514
  Receipt Date: 20150514
  Transmission Date: 20150821
  Serious: Yes (Life-Threatening, Other)
  Sender: FDA-Public Use
  Company Number: TR-ROXANE LABORATORIES, INC.-2015-RO-00797RO

PATIENT
  Age: 29 Year
  Sex: Male

DRUGS (1)
  1. DEXAMETHASONE. [Suspect]
     Active Substance: DEXAMETHASONE
     Indication: LYMPHOCYTIC LEUKAEMIA
     Dosage: 20 MG
     Route: 048

REACTIONS (2)
  - Suicide attempt [Unknown]
  - Major depression [Unknown]
